FAERS Safety Report 9259612 (Version 2)
Quarter: 2013Q2

REPORT INFORMATION
  Report Type: Spontaneous
  Country: JP (occurrence: JP)
  Receive Date: 20130429
  Receipt Date: 20130514
  Transmission Date: 20140414
  Serious: Yes (Death, Hospitalization)
  Sender: FDA-Public Use
  Company Number: JP-ROCHE-1217998

PATIENT
  Age: 63 Year
  Sex: Female

DRUGS (12)
  1. RITUXIMAB [Suspect]
     Indication: B-CELL LYMPHOMA
     Route: 065
  2. RITUXIMAB [Suspect]
     Indication: HISTIOCYTOSIS HAEMATOPHAGIC
  3. PREDNISOLONE [Suspect]
     Indication: B-CELL LYMPHOMA
     Route: 065
  4. PREDNISOLONE [Suspect]
     Indication: HISTIOCYTOSIS HAEMATOPHAGIC
  5. CYCLOPHOSPHAMIDE [Concomitant]
     Indication: B-CELL LYMPHOMA
     Route: 065
  6. CYCLOPHOSPHAMIDE [Concomitant]
     Indication: HISTIOCYTOSIS HAEMATOPHAGIC
  7. DOXORUBICIN [Concomitant]
     Indication: B-CELL LYMPHOMA
     Route: 065
  8. DOXORUBICIN [Concomitant]
     Indication: HISTIOCYTOSIS HAEMATOPHAGIC
  9. VINCRISTIN [Concomitant]
     Indication: B-CELL LYMPHOMA
     Route: 065
  10. VINCRISTIN [Concomitant]
     Indication: HISTIOCYTOSIS HAEMATOPHAGIC
  11. MITOXANTRON [Concomitant]
     Route: 065
  12. CYTARABINE [Concomitant]
     Route: 065

REACTIONS (1)
  - Adult T-cell lymphoma/leukaemia [Fatal]
